FAERS Safety Report 4876555-X (Version None)
Quarter: 2005Q4

REPORT INFORMATION
  Report Type: 
  Country: None (occurrence: None)
  Receive Date: 20051206
  Receipt Date: 20050929
  Transmission Date: 20060501
  Serious: No
  Sender: FDA-Public Use
  Company Number: USA0510109841

PATIENT
  Sex: Male

DRUGS (9)
  1. CYMBALTA [Suspect]
     Dosage: 30 MG/2 DAY
     Dates: start: 20050924
  2. NEXIUM [Concomitant]
  3. FLEXERIL [Concomitant]
  4. IBUPROFEN [Concomitant]
  5. ZOCOR [Concomitant]
  6. CARBIDOPA [Concomitant]
  7. ATENOLOL [Concomitant]
  8. AMITRIPTYLINE HCL [Concomitant]
  9. TRAMADOL HCL [Concomitant]

REACTIONS (1)
  - DRUG SCREEN FALSE POSITIVE [None]
